FAERS Safety Report 16817248 (Version 1)
Quarter: 2019Q4

REPORT INFORMATION
  Report Type: Spontaneous
  Country: US (occurrence: US)
  Receive Date: 20190917
  Receipt Date: 20190917
  Transmission Date: 20200122
  Serious: Yes (Other)
  Sender: FDA-Public Use
  Company Number: None

PATIENT
  Age: 66 Year
  Sex: Female
  Weight: 99 kg

DRUGS (13)
  1. MULTIVITAMIN [Concomitant]
     Active Substance: VITAMINS
  2. BENAZEPRIL [Concomitant]
     Active Substance: BENAZEPRIL HYDROCHLORIDE
  3. FISH OIL [Concomitant]
     Active Substance: FISH OIL
  4. TUMERIC [Concomitant]
     Active Substance: HERBALS\TURMERIC
  5. KENALOG-40 [Suspect]
     Active Substance: TRIAMCINOLONE ACETONIDE
     Indication: PAIN
     Dosage: ?          OTHER ROUTE:INJECTION INTO THE JOINT?
     Dates: start: 20190905
  6. TYLENOL [Concomitant]
     Active Substance: ACETAMINOPHEN
  7. LEVOTHYROXINE. [Concomitant]
     Active Substance: LEVOTHYROXINE
  8. PRAVASTATIN. [Concomitant]
     Active Substance: PRAVASTATIN
  9. BORAGE SEED OIL. [Concomitant]
     Active Substance: BORAGE SEED OIL
  10. ARNICARE [Concomitant]
     Active Substance: HOMEOPATHICS
  11. ST JOHNS WART [Concomitant]
  12. IBUPROFEN. [Concomitant]
     Active Substance: IBUPROFEN
  13. METFORMIN [Concomitant]
     Active Substance: METFORMIN HYDROCHLORIDE

REACTIONS (7)
  - Night sweats [None]
  - Pyrexia [None]
  - Vaginal haemorrhage [None]
  - Insomnia [None]
  - Hyperhidrosis [None]
  - Muscle spasms [None]
  - Blood potassium decreased [None]

NARRATIVE: CASE EVENT DATE: 20190905
